FAERS Safety Report 7457194-3 (Version None)
Quarter: 2011Q2

REPORT INFORMATION
  Report Type: 
  Country: None (occurrence: None)
  Receive Date: 20110504
  Receipt Date: 20110429
  Transmission Date: 20111010
  Serious: No
  Sender: FDA-Public Use
  Company Number: US-PFIZER INC-2007028718

PATIENT
  Sex: Female
  Weight: 86 kg

DRUGS (12)
  1. REGLAN [Concomitant]
  2. VYTORIN [Concomitant]
  3. CHANTIX [Suspect]
     Dosage: 0.5 MG, 1X/DAY
     Dates: start: 20090101, end: 20090101
  4. GLIPIZIDE [Concomitant]
  5. CHANTIX [Suspect]
     Indication: SMOKING CESSATION THERAPY
     Dosage: UNK
     Dates: start: 20070402
  6. ATENOLOL [Concomitant]
  7. PRILOSEC [Concomitant]
  8. SITAGLIPTIN [Concomitant]
  9. CHANTIX [Suspect]
     Dosage: 0.5 MG, 1X/DAY
     Route: 048
     Dates: start: 20070101, end: 20070101
  10. ACTOS [Concomitant]
  11. CYMBALTA [Concomitant]
  12. DARIFENACIN [Concomitant]

REACTIONS (5)
  - ABDOMINAL PAIN UPPER [None]
  - NAUSEA [None]
  - MALAISE [None]
  - DIZZINESS [None]
  - HEADACHE [None]
